FAERS Safety Report 6381103-1 (Version None)
Quarter: 2009Q3

REPORT INFORMATION
  Report Type: 
  Country: None (occurrence: None)
  Receive Date: 20090925
  Receipt Date: 20090925
  Transmission Date: 20100115
  Serious: Yes (Hospitalization)
  Sender: FDA-Public Use
  Company Number: None

PATIENT
  Age: 55 Year
  Sex: Female
  Weight: 61.2356 kg

DRUGS (1)
  1. CELEBREX [Suspect]
     Indication: OSTEOARTHRITIS
     Dosage: 20 MG. 1/DAILY PO
     Route: 048
     Dates: start: 20090826, end: 20090905

REACTIONS (2)
  - DRUG ERUPTION [None]
  - RASH GENERALISED [None]
